FAERS Safety Report 6291467-5 (Version None)
Quarter: 2009Q3

REPORT INFORMATION
  Report Type: 
  Country: None (occurrence: None)
  Receive Date: 20090730
  Receipt Date: 20090722
  Transmission Date: 20100115
  Serious: Yes (Other)
  Sender: FDA-Public Use
  Company Number: ES-ASTRAZENECA-2009SE05572

PATIENT
  Age: 92 Year
  Sex: Male

DRUGS (4)
  1. ATACAND [Suspect]
     Route: 048
     Dates: start: 20090406, end: 20090412
  2. TAVANIC [Suspect]
     Indication: PNEUMONIA
     Route: 048
     Dates: start: 20090407, end: 20090412
  3. DIGOXIN [Concomitant]
     Route: 065
     Dates: start: 20090403, end: 20090406
  4. LEVOFLOXACION COMBINO PHARM [Concomitant]
     Indication: PNEUMONIA
     Route: 042
     Dates: start: 20090403, end: 20090407

REACTIONS (1)
  - CONVULSION [None]
